FAERS Safety Report 4547968-0 (Version None)
Quarter: 2004Q4

REPORT INFORMATION
  Report Type: 
  Country: None (occurrence: None)
  Receive Date: 20041220
  Receipt Date: 20041019
  Transmission Date: 20050328
  Serious: Yes (Death)
  Sender: FDA-Public Use
  Company Number: USA041081550

PATIENT
  Age: 57 Year
  Sex: Male
  Weight: 77 kg

DRUGS (2)
  1. INSULIN [Suspect]
  2. AMARYL [Concomitant]

REACTIONS (2)
  - DEATH [None]
  - WEIGHT INCREASED [None]
